FAERS Safety Report 7752693-9 (Version None)
Quarter: 2011Q3

REPORT INFORMATION
  Report Type: 
  Country: None (occurrence: None)
  Receive Date: 20110915
  Receipt Date: 20110909
  Transmission Date: 20111222
  Serious: Yes (Hospitalization)
  Sender: FDA-Public Use
  Company Number: DK-PFIZER INC-2011211826

PATIENT
  Age: 69 Year
  Sex: Female
  Weight: 66 kg

DRUGS (1)
  1. SUNITINIB MALATE [Suspect]
     Indication: RENAL CELL CARCINOMA
     Dosage: 50 MG, UNK
     Dates: start: 20070619, end: 20070712

REACTIONS (5)
  - DIARRHOEA [None]
  - DEHYDRATION [None]
  - NAUSEA [None]
  - THROMBOCYTOPENIA [None]
  - VOMITING [None]
